FAERS Safety Report 9948995 (Version 1)
Quarter: 2014Q1

REPORT INFORMATION
  Report Type: Spontaneous
  Country: US (occurrence: US)
  Receive Date: 20140304
  Receipt Date: 20140304
  Transmission Date: 20141002
  Serious: Yes (Hospitalization)
  Sender: FDA-Public Use
  Company Number: US-AMGEN-USASP2014014006

PATIENT
  Age: 80 Year
  Sex: Male

DRUGS (2)
  1. XGEVA [Suspect]
     Indication: METASTASES TO BONE
     Route: 065
  2. XGEVA [Suspect]
     Indication: PROSTATE CANCER

REACTIONS (3)
  - White blood cell count increased [Recovered/Resolved]
  - Chest pain [Recovered/Resolved]
  - Dyspnoea [Recovered/Resolved]
